FAERS Safety Report 20956588 (Version 1)
Quarter: 2022Q2

REPORT INFORMATION
  Report Type: Spontaneous
  Country: US (occurrence: None)
  Receive Date: 20220614
  Receipt Date: 20220614
  Transmission Date: 20220721
  Serious: No
  Sender: FDA-Public Use
  Company Number: None

PATIENT
  Age: 54 Year
  Sex: Male
  Weight: 114 kg

DRUGS (1)
  1. VANCOMYCIN HYDROCHLORIDE [Suspect]
     Active Substance: VANCOMYCIN HYDROCHLORIDE
     Indication: Surgery
     Dosage: FREQUENCY : ONCE;?
     Route: 042
     Dates: start: 20211007, end: 20211007

REACTIONS (5)
  - Respiratory distress [None]
  - Agitation [None]
  - Hypertension [None]
  - Respiratory arrest [None]
  - Tachycardia [None]

NARRATIVE: CASE EVENT DATE: 20211007
